FAERS Safety Report 19990782 (Version 1)
Quarter: 2021Q4

REPORT INFORMATION
  Report Type: Spontaneous
  Country: US (occurrence: US)
  Receive Date: 20211025
  Receipt Date: 20211025
  Transmission Date: 20220303
  Serious: No
  Sender: FDA-Public Use
  Company Number: US-QED THERAPEUTICS-QED-2021-000087

PATIENT
  Sex: Female

DRUGS (4)
  1. TRUSELTIQ [Suspect]
     Active Substance: INFIGRATINIB
     Indication: Cholangiocarcinoma
     Dosage: 125 MILLIGRAM, QD (DAILY)
     Route: 048
     Dates: start: 20210706
  2. TRUSELTIQ [Suspect]
     Active Substance: INFIGRATINIB
     Dosage: 100 MILLIGRAM, QD (DAILY)
     Route: 048
  3. TRUSELTIQ [Suspect]
     Active Substance: INFIGRATINIB
     Dosage: 75 MILLIGRAM, QD
     Route: 048
     Dates: end: 20211004
  4. PURE BAKING SODA [Concomitant]
     Active Substance: SODIUM BICARBONATE
     Indication: Stomatitis
     Dosage: UNK
     Route: 065

REACTIONS (10)
  - Skin exfoliation [Unknown]
  - Blister [Recovering/Resolving]
  - Stomatitis [Unknown]
  - Vomiting [Unknown]
  - Nausea [Unknown]
  - Fatigue [Unknown]
  - Arthralgia [Recovered/Resolved]
  - Alopecia [Unknown]
  - Growth of eyelashes [Unknown]
  - Neoplasm progression [Unknown]
